FAERS Safety Report 12966960 (Version 1)
Quarter: 2016Q4

REPORT INFORMATION
  Report Type: Spontaneous
  Country: US (occurrence: US)
  Receive Date: 20161121
  Receipt Date: 20161121
  Transmission Date: 20170207
  Serious: Yes (Disabling, Other)
  Sender: FDA-Public Use
  Company Number: None

PATIENT
  Age: 52 Year
  Sex: Female
  Weight: 69.4 kg

DRUGS (8)
  1. VITAMIN C [Concomitant]
     Active Substance: ASCORBIC ACID
  2. QVAR [Concomitant]
     Active Substance: BECLOMETHASONE DIPROPIONATE
  3. ALBUTEROL. [Concomitant]
     Active Substance: ALBUTEROL
  4. MULTI VITAMIN [Concomitant]
     Active Substance: VITAMINS
  5. DIGESTIVE ADVANTAGE [Concomitant]
  6. ZOFRAN [Concomitant]
     Active Substance: ONDANSETRON HYDROCHLORIDE
  7. COCONUT OIL [Concomitant]
     Active Substance: COCONUT OIL
  8. DATSCAN [Suspect]
     Active Substance: IODINE\IOFLUPANE I-123

REACTIONS (5)
  - Retching [None]
  - Loss of consciousness [None]
  - Influenza like illness [None]
  - Feeling cold [None]
  - Hyperhidrosis [None]

NARRATIVE: CASE EVENT DATE: 20161109
